FAERS Safety Report 7314355-1 (Version None)
Quarter: 2011Q1

REPORT INFORMATION
  Report Type: 
  Country: None (occurrence: None)
  Receive Date: 20110225
  Receipt Date: 20100726
  Transmission Date: 20110831
  Serious: No
  Sender: FDA-Public Use
  Company Number: US-MYLANLABS-2010S1013690

PATIENT
  Age: 46 Year
  Sex: Female

DRUGS (1)
  1. AMNESTEEM [Suspect]

REACTIONS (4)
  - PARAESTHESIA [None]
  - NAUSEA [None]
  - DYSGEUSIA [None]
  - HYPERHIDROSIS [None]
